FAERS Safety Report 10067125 (Version 2)
Quarter: 2014Q2

REPORT INFORMATION
  Report Type: Other
  Country: GB (occurrence: GB)
  Receive Date: 20140409
  Receipt Date: 20140409
  Transmission Date: 20141212
  Serious: Yes (Other)
  Sender: FDA-Public Use
  Company Number: GB-SHIRE-ALL1-2012-02978

PATIENT
  Age: 24 Year
  Sex: Male

DRUGS (1)
  1. ELAPRASE [Suspect]
     Indication: MUCOPOLYSACCHARIDOSIS II
     Dosage: 30 MG, 1X/WEEK
     Route: 041
     Dates: start: 200703

REACTIONS (4)
  - Peripheral circulatory failure [Unknown]
  - Back pain [Unknown]
  - Chills [Recovered/Resolved]
  - Infusion related reaction [Unknown]
